FAERS Safety Report 16526243 (Version 1)
Quarter: 2019Q3

REPORT INFORMATION
  Report Type: Spontaneous
  Country: US (occurrence: US)
  Receive Date: 20190703
  Receipt Date: 20190703
  Transmission Date: 20191004
  Serious: Yes (Disabling, Other)
  Sender: FDA-Public Use
  Company Number: US-SA-2019SA177948

PATIENT
  Sex: Female

DRUGS (1)
  1. GOLD BOND EXTRA STRENGTH [Suspect]
     Active Substance: MENTHOL
     Dosage: UNK

REACTIONS (2)
  - Deformity [Unknown]
  - Mesothelioma [Unknown]
